FAERS Safety Report 6216649-X (Version None)
Quarter: 2009Q2

REPORT INFORMATION
  Report Type: 
  Country: None (occurrence: None)
  Receive Date: 20090603
  Receipt Date: 20090603
  Transmission Date: 20091009
  Serious: No
  Sender: FDA-Public Use
  Company Number: None

PATIENT
  Sex: Female
  Weight: 56.6996 kg

DRUGS (1)
  1. KENALOG [Suspect]
     Indication: EPICONDYLITIS
     Dosage: SINGLE INJECTION

REACTIONS (5)
  - ELBOW DEFORMITY [None]
  - HYPERSENSITIVITY [None]
  - INJECTION SITE REACTION [None]
  - PRURITUS [None]
  - SKIN ATROPHY [None]
